FAERS Safety Report 20223635 (Version 1)
Quarter: 2021Q4

REPORT INFORMATION
  Report Type: Spontaneous
  Country: RE (occurrence: RE)
  Receive Date: 20211223
  Receipt Date: 20211223
  Transmission Date: 20220303
  Serious: Yes (Other)
  Sender: FDA-Public Use
  Company Number: RE-AMGEN-REUSP2021199347

PATIENT
  Age: 63 Year
  Sex: Male

DRUGS (1)
  1. ARANESP [Suspect]
     Active Substance: DARBEPOETIN ALFA
     Indication: Coagulopathy
     Dosage: UNK
     Route: 065

REACTIONS (2)
  - Toxic skin eruption [Unknown]
  - Anaemia [Unknown]
